FAERS Safety Report 4667828-4 (Version None)
Quarter: 2005Q2

REPORT INFORMATION
  Report Type: 
  Country: None (occurrence: None)
  Receive Date: 20050520
  Receipt Date: 20050218
  Transmission Date: 20051028
  Serious: Yes (Hospitalization)
  Sender: FDA-Public Use
  Company Number: US-MERCK-0502USA02977

PATIENT
  Age: 55 Year
  Sex: Male
  Weight: 109 kg

DRUGS (6)
  1. VIOXX [Suspect]
     Indication: MYOSITIS
     Route: 048
     Dates: start: 20020101, end: 20040201
  2. ASPIRIN [Concomitant]
     Route: 065
     Dates: start: 19970101
  3. LIPITOR [Concomitant]
     Route: 065
     Dates: start: 19990101
  4. PREDNISONE [Concomitant]
     Route: 065
  5. LISINOPRIL-BC [Concomitant]
     Route: 065
     Dates: start: 20010101
  6. VITAMINS (UNSPECIFIED) [Concomitant]
     Route: 065

REACTIONS (4)
  - ANGINA UNSTABLE [None]
  - BLOOD CHOLESTEROL INCREASED [None]
  - MYOCARDIAL INFARCTION [None]
  - SPINAL COLUMN STENOSIS [None]
